FAERS Safety Report 23861804 (Version 2)
Quarter: 2024Q4

REPORT INFORMATION
  Report Type: Spontaneous
  Country: DE (occurrence: DE)
  Receive Date: 20240516
  Receipt Date: 20241009
  Transmission Date: 20250114
  Serious: Yes (Life-Threatening, Hospitalization, Other)
  Sender: CIPLA
  Company Number: None

PATIENT

DRUGS (5)
  1. DICLOFENAC [Suspect]
     Active Substance: DICLOFENAC
     Dosage: 1425 MG, UNK
     Route: 048
  2. METAMIZOLE [Suspect]
     Active Substance: METAMIZOLE
     Dosage: 21000 MG, UNK
     Route: 048
  3. RIVAROXABAN [Suspect]
     Active Substance: RIVAROXABAN
     Indication: Anticoagulant therapy
     Dosage: 20 MG, DAILY
     Route: 048
  4. RIVAROXABAN [Suspect]
     Active Substance: RIVAROXABAN
     Dosage: 1960 MG, TOTAL
     Route: 048
  5. PHENPROCOUMON [Suspect]
     Active Substance: PHENPROCOUMON
     Dosage: 31.5 MG, UNK
     Route: 048

REACTIONS (11)
  - Intentional overdose [Recovering/Resolving]
  - Toxicity to various agents [Recovered/Resolved]
  - Platelet dysfunction [Unknown]
  - Suicide attempt [Recovering/Resolving]
  - Coagulopathy [Recovering/Resolving]
  - Coagulation test abnormal [Recovered/Resolved]
  - International normalised ratio increased [Unknown]
  - Poisoning [Unknown]
  - Anticoagulation drug level above therapeutic [Recovered/Resolved]
  - Vomiting [Recovered/Resolved]
  - Haematuria [Recovered/Resolved]
